FAERS Safety Report 4328982-7 (Version None)
Quarter: 2004Q1

REPORT INFORMATION
  Report Type: 
  Country: None (occurrence: None)
  Receive Date: 20040331
  Receipt Date: 20040331
  Transmission Date: 20041129
  Serious: Yes (Life-Threatening, Disabling)
  Sender: FDA-Public Use
  Company Number: None

PATIENT
  Age: 53 Year
  Sex: Female
  Weight: 63.5036 kg

DRUGS (2)
  1. HUMULIN U [Suspect]
     Indication: DIABETES MELLITUS
     Dosage: 28 UNITS DAILY
     Dates: start: 19980701
  2. LANTUS [Suspect]
     Indication: DIABETES MELLITUS
     Dosage: 25 UNITS DAILY
     Dates: start: 20010101, end: 20020101

REACTIONS (6)
  - AMNESIA [None]
  - CONFUSIONAL STATE [None]
  - DEPRESSION [None]
  - HEADACHE [None]
  - INFECTION [None]
  - PHARMACEUTICAL PRODUCT COMPLAINT [None]
